FAERS Safety Report 7991638-3 (Version None)
Quarter: 2011Q4

REPORT INFORMATION
  Report Type: 
  Country: None (occurrence: None)
  Receive Date: 20111219
  Receipt Date: 20111209
  Transmission Date: 20120403
  Serious: Yes (Other)
  Sender: FDA-Public Use
  Company Number: PHHY2011GB107562

PATIENT
  Sex: Female

DRUGS (2)
  1. VESICARE [Suspect]
     Dates: start: 20100201
  2. FLUOXETINE [Suspect]
     Dosage: 3 MG, UNK
     Route: 048

REACTIONS (4)
  - ACNE [None]
  - URTICARIA [None]
  - DRY SKIN [None]
  - PRURITUS [None]
